FAERS Safety Report 5393877-7 (Version None)
Quarter: 2007Q3

REPORT INFORMATION
  Report Type: 
  Country: None (occurrence: None)
  Receive Date: 20070723
  Receipt Date: 20070716
  Transmission Date: 20080115
  Serious: Yes (Death, Hospitalization)
  Sender: FDA-Public Use
  Company Number: B0479683A

PATIENT
  Age: 58 Year
  Sex: Female
  Weight: 61 kg

DRUGS (2)
  1. TYKERB [Suspect]
     Dosage: 1250MG PER DAY
     Route: 048
     Dates: start: 20070531, end: 20070628
  2. XELODA [Suspect]
     Dosage: 2000MG PER DAY
     Route: 048
     Dates: start: 20070531, end: 20070628

REACTIONS (3)
  - CARDIAC TAMPONADE [None]
  - RESPIRATORY DISTRESS [None]
  - RESPIRATORY FAILURE [None]
